FAERS Safety Report 9915929 (Version 1)
Quarter: 2014Q1

REPORT INFORMATION
  Report Type: Spontaneous
  Country: US (occurrence: None)
  Receive Date: 20140219
  Receipt Date: 20140219
  Transmission Date: 20141002
  Serious: Yes (Hospitalization)
  Sender: FDA-Public Use
  Company Number: PR-AE14-000378

PATIENT
  Sex: Female

DRUGS (1)
  1. DRAMAMINE [Suspect]
     Indication: MOTION SICKNESS
     Dosage: UNK, UNK, ORAL
     Dates: end: 20140203

REACTIONS (2)
  - Paraesthesia [None]
  - Guillain-Barre syndrome [None]
